FAERS Safety Report 9349322 (Version 2)
Quarter: 2013Q2

REPORT INFORMATION
  Report Type: Spontaneous
  Country: FR (occurrence: FR)
  Receive Date: 20130614
  Receipt Date: 20130621
  Transmission Date: 20140414
  Serious: Yes (Hospitalization)
  Sender: FDA-Public Use
  Company Number: FR-ABBOTT-13X-056-1104620-00

PATIENT
  Age: 43 Year
  Sex: Female

DRUGS (3)
  1. DEPAKOTE [Suspect]
     Indication: DEPRESSION
     Route: 048
     Dates: start: 2002
  2. TERCIAN [Suspect]
     Indication: SLEEP DISORDER
     Route: 048
     Dates: start: 2011
  3. THERALEN [Suspect]
     Indication: PRODUCT USED FOR UNKNOWN INDICATION
     Route: 048
     Dates: start: 2011

REACTIONS (3)
  - Optic neuropathy [Not Recovered/Not Resolved]
  - Visual acuity reduced [Unknown]
  - Visual field defect [Unknown]
